FAERS Safety Report 22358872 (Version 1)
Quarter: 2023Q2

REPORT INFORMATION
  Report Type: Spontaneous
  Country: GB (occurrence: GB)
  Receive Date: 20230524
  Receipt Date: 20230524
  Transmission Date: 20230721
  Serious: Yes (Other)
  Sender: FDA-Public Use
  Company Number: GB-ROCHE-3338213

PATIENT
  Age: 80 Year
  Sex: Female

DRUGS (5)
  1. EYLEA [Suspect]
     Active Substance: AFLIBERCEPT
     Indication: Neovascular age-related macular degeneration
     Dosage: 2 MG, SOLUTION FOR INJECTION , 40MG/ML
     Route: 065
     Dates: start: 20150106, end: 20220330
  2. VABYSMO [Suspect]
     Active Substance: FARICIMAB-SVOA
     Indication: Neovascular age-related macular degeneration
     Dosage: 6 MG, Q4WK
     Route: 050
     Dates: start: 20221116, end: 20221116
  3. VABYSMO [Suspect]
     Active Substance: FARICIMAB-SVOA
     Dosage: 6 MG, Q4WK
     Dates: start: 20230209, end: 20230209
  4. CYCLOPENTOLATE [Concomitant]
     Active Substance: CYCLOPENTOLATE
     Indication: Product used for unknown indication
     Dosage: UNK
  5. MAXIDEX [Concomitant]
     Active Substance: DEXAMETHASONE
     Indication: Product used for unknown indication
     Dosage: UNK

REACTIONS (3)
  - Vitreous haze [Recovered/Resolved]
  - Iridocyclitis [Recovered/Resolved]
  - Corneal disorder [Unknown]

NARRATIVE: CASE EVENT DATE: 20230308
